FAERS Safety Report 15916456 (Version 2)
Quarter: 2019Q1

REPORT INFORMATION
  Report Type: Spontaneous
  Country: CA (occurrence: CA)
  Receive Date: 20190204
  Receipt Date: 20190312
  Transmission Date: 20190417
  Serious: Yes (Other)
  Sender: FDA-Public Use
  Company Number: CA-AMGEN-CANSP2019016682

PATIENT
  Age: 55 Year
  Sex: Female

DRUGS (23)
  1. LYRICA [Concomitant]
     Active Substance: PREGABALIN
     Dosage: 150 MILLIGRAM, BID
     Route: 048
     Dates: start: 20180724
  2. DEPO-MEDROL [Concomitant]
     Active Substance: METHYLPREDNISOLONE ACETATE
     Dosage: 80 MILLIGRAM
     Dates: start: 20170425
  3. FOLIC ACID. [Concomitant]
     Active Substance: FOLIC ACID
     Dosage: 5 MILLIGRAM, QD
     Route: 048
  4. REMICADE [Concomitant]
     Active Substance: INFLIXIMAB
     Dosage: UNK
     Dates: start: 201003, end: 201103
  5. PLAQUENIL [Concomitant]
     Active Substance: HYDROXYCHLOROQUINE SULFATE
     Dosage: 400 MILLIGRAM
     Dates: start: 199902
  6. PROLIA [Concomitant]
     Active Substance: DENOSUMAB
     Indication: PRODUCT USED FOR UNKNOWN INDICATION
     Dosage: 60 MILLIGRAM, Q6MO
     Route: 058
  7. METHOTREXATE. [Concomitant]
     Active Substance: METHOTREXATE
     Dosage: 25 MILLIGRAM, QWK
     Dates: start: 20180205
  8. METHOTREXATE. [Concomitant]
     Active Substance: METHOTREXATE
     Dosage: 20 MILLIGRAM, QWK
     Route: 048
     Dates: start: 20180724
  9. VENLAFAXINE XR [Concomitant]
     Active Substance: VENLAFAXINE HYDROCHLORIDE
     Dosage: 37.5 MILLIGRAM
     Route: 048
  10. ENBREL [Suspect]
     Active Substance: ETANERCEPT
     Indication: PRODUCT USED FOR UNKNOWN INDICATION
     Dosage: 25 MILLIGRAM, 2 TIMES/WK
     Route: 058
     Dates: start: 200205
  11. ENBREL [Suspect]
     Active Substance: ETANERCEPT
     Dosage: 25 MILLIGRAM
     Route: 065
     Dates: end: 201109
  12. ENBREL [Suspect]
     Active Substance: ETANERCEPT
     Dosage: 50 MILLIGRAM, 2 TIMES/WK
     Route: 058
     Dates: start: 20170518, end: 20170816
  13. NEXIUM [Concomitant]
     Active Substance: ESOMEPRAZOLE MAGNESIUM
     Dosage: 40 MILLIGRAM, QD
     Route: 048
  14. KENALOG [Concomitant]
     Active Substance: TRIAMCINOLONE ACETONIDE
     Dosage: 40 MILLIGRAM , Q UNK
  15. METHOTREXATE. [Concomitant]
     Active Substance: METHOTREXATE
     Dosage: 2.5 MILLIGRAM, QD
     Dates: start: 199809, end: 200408
  16. PREDNISONE. [Concomitant]
     Active Substance: PREDNISONE
     Dosage: 10 MILLIGRAM AM AND 5 MILLIGRAM PM THEN DECREASE TO 5 MILLIGRAM BID
     Route: 048
  17. ENBREL [Suspect]
     Active Substance: ETANERCEPT
     Dosage: 25 MILLIGRAM
     Route: 065
     Dates: start: 201312, end: 201312
  18. ENBREL [Suspect]
     Active Substance: ETANERCEPT
     Dosage: UNK
     Route: 065
     Dates: start: 20131212, end: 20140904
  19. LYRICA [Concomitant]
     Active Substance: PREGABALIN
     Dosage: LOWER THAN 150 MILLIGRAM BID
     Dates: start: 20170816
  20. PREVNAR 13 [Concomitant]
     Active Substance: PNEUMOCOCCAL 13-VALENT CONJUGATE VACCINE
     Dosage: UNK
     Dates: start: 20181031, end: 20181031
  21. GABAPENTIN. [Concomitant]
     Active Substance: GABAPENTIN
     Dosage: HIGHER THAN 300 MILLIGRAM BID
     Dates: start: 20160817
  22. METHOTREXATE. [Concomitant]
     Active Substance: METHOTREXATE
     Dosage: HIGHER THAN 20 MILLIGRAM EVERY WEEK
     Dates: start: 200502
  23. GABAPENTIN. [Concomitant]
     Active Substance: GABAPENTIN
     Dosage: 300 MILLIGRAM, BID
     Dates: start: 20160921

REACTIONS (7)
  - Osteoporosis [Unknown]
  - Systemic scleroderma [Unknown]
  - Latent tuberculosis [Unknown]
  - Drug ineffective [Unknown]
  - Herpes zoster [Unknown]
  - Helicobacter gastritis [Unknown]
  - Osteoarthritis [Unknown]

NARRATIVE: CASE EVENT DATE: 2010
